FAERS Safety Report 10368467 (Version 2)
Quarter: 2014Q3

REPORT INFORMATION
  Report Type: Spontaneous
  Country: FR (occurrence: FR)
  Receive Date: 20140807
  Receipt Date: 20140918
  Transmission Date: 20150326
  Serious: Yes (Hospitalization)
  Sender: FDA-Public Use
  Company Number: FR-PFIZER INC-2014215713

PATIENT
  Age: 37 Year
  Sex: Female

DRUGS (13)
  1. INEXIUM /01479302/ [Concomitant]
     Active Substance: ESOMEPRAZOLE MAGNESIUM
  2. MAGNESIUM [Concomitant]
     Active Substance: MAGNESIUM
     Dosage: 2 DF, DAILY
  3. NEORAL [Suspect]
     Active Substance: CYCLOSPORINE
     Dosage: 150 MG, 2X/DAY
     Dates: start: 20140626, end: 20140705
  4. SPECIAFOLDINE [Concomitant]
     Active Substance: FOLIC ACID
     Dosage: 5 MG, DAILY
     Dates: start: 2011
  5. ZELITREX [Concomitant]
     Active Substance: VALACYCLOVIR HYDROCHLORIDE
  6. OESTROGEL [Concomitant]
     Active Substance: ESTRADIOL
     Dosage: 1 DF, DAILY
  7. ATGAM [Suspect]
     Active Substance: EQUINE THYMOCYTE IMMUNE GLOBULIN
     Dosage: 1250 MG, DAILY
     Route: 042
     Dates: start: 20140630, end: 20140701
  8. DUPHASTON [Concomitant]
     Active Substance: DYDROGESTERONE
     Dosage: 20 MG, DAILY
  9. POLARAMINE [Concomitant]
     Active Substance: DEXCHLORPHENIRAMINE MALEATE
     Indication: PREMEDICATION
     Dosage: 5 MG, 2X/DAY
  10. ATGAM [Suspect]
     Active Substance: EQUINE THYMOCYTE IMMUNE GLOBULIN
     Dosage: 2400 MG, DAILY
     Dates: start: 20140702, end: 20140704
  11. SOLU-MEDROL [Concomitant]
     Active Substance: METHYLPREDNISOLONE SODIUM SUCCINATE
     Indication: PREMEDICATION
     Dosage: 30 MG, 4X/DAY
  12. PERFALGAN [Concomitant]
     Active Substance: ACETAMINOPHEN
     Indication: PREMEDICATION
     Dosage: 1 G, 2X/DAY
  13. TOPALGIC [Suspect]
     Active Substance: TRAMADOL
     Dosage: 100 MG, DAILY
     Dates: start: 20140628, end: 20140705

REACTIONS (2)
  - Cholestasis [Recovered/Resolved]
  - Sinus bradycardia [Recovered/Resolved]

NARRATIVE: CASE EVENT DATE: 20140705
